FAERS Safety Report 8838924 (Version 1)
Quarter: 2012Q4

REPORT INFORMATION
  Report Type: Spontaneous
  Country: US (occurrence: None)
  Receive Date: 20121011
  Receipt Date: 20121011
  Transmission Date: 20130627
  Serious: Yes (Hospitalization)
  Sender: FDA-Public Use
  Company Number: None

PATIENT
  Age: 79 Year
  Sex: Female

DRUGS (1)
  1. SENSIPAR [Suspect]
     Indication: CHRONIC KIDNEY DISEASE
     Dosage: SENSIPAR TAB 30MG 1 PO DAILY
     Route: 048
     Dates: start: 20120701

REACTIONS (1)
  - Transient ischaemic attack [None]
